FAERS Safety Report 20737640 (Version 3)
Quarter: 2022Q2

REPORT INFORMATION
  Report Type: Spontaneous
  Country: DE (occurrence: DE)
  Receive Date: 20220422
  Receipt Date: 20220524
  Transmission Date: 20220721
  Serious: Yes (Other)
  Sender: FDA-Public Use
  Company Number: DE-DCGMA-21192376

PATIENT
  Age: 59 Year
  Sex: Male
  Weight: 113 kg

DRUGS (10)
  1. PRIVIGEN [Suspect]
     Active Substance: HUMAN IMMUNOGLOBULIN G
     Indication: Selective IgG subclass deficiency
     Dosage: 30 DOSAGE FORM, QD
     Route: 042
  2. PRIVIGEN [Suspect]
     Active Substance: HUMAN IMMUNOGLOBULIN G
     Dosage: UNK
     Route: 042
  3. PRIVIGEN [Suspect]
     Active Substance: HUMAN IMMUNOGLOBULIN G
     Dosage: UNK
     Route: 042
  4. CERTOPARIN SODIUM [Concomitant]
     Active Substance: CERTOPARIN SODIUM
  5. INSULIN NOS [Concomitant]
     Active Substance: INSULIN NOS
  6. ALBUTEROL [Concomitant]
     Active Substance: ALBUTEROL
  7. METAMIZOLE [Concomitant]
     Active Substance: METAMIZOLE
  8. ACETYLCYSTEINE [Concomitant]
     Active Substance: ACETYLCYSTEINE
  9. ESOMEPRAZOLE [Concomitant]
     Active Substance: ESOMEPRAZOLE
  10. DEXMEDETOMIDINE HYDROCHLORIDE [Concomitant]
     Active Substance: DEXMEDETOMIDINE HYDROCHLORIDE

REACTIONS (5)
  - Body temperature increased [Unknown]
  - Restlessness [Unknown]
  - Tachycardia [Unknown]
  - Bronchospasm [Unknown]
  - Hyperventilation [Unknown]

NARRATIVE: CASE EVENT DATE: 20210602
